FAERS Safety Report 8958619 (Version 1)
Quarter: 2012Q4

REPORT INFORMATION
  Report Type: Spontaneous
  Country: US (occurrence: None)
  Receive Date: 20121206
  Receipt Date: 20121206
  Transmission Date: 20130627
  Serious: Yes (Other)
  Sender: FDA-Public Use
  Company Number: None

PATIENT
  Age: 34 Year
  Sex: Female
  Weight: 79.38 kg

DRUGS (4)
  1. AVELOX [Suspect]
     Indication: SINUS INFECTION
     Dosage: 400 mg tablet once daily po
     Route: 048
     Dates: start: 20121129, end: 20121129
  2. SINGULAIR [Concomitant]
  3. CERTIRIZINE HCL [Concomitant]
  4. IBUPROFEN [Concomitant]

REACTIONS (11)
  - No reaction on previous exposure to drug [None]
  - Flushing [None]
  - Paraesthesia [None]
  - Generalised erythema [None]
  - Urticaria [None]
  - Rash pruritic [None]
  - Lip swelling [None]
  - Swelling face [None]
  - Oropharyngeal pain [None]
  - Tremor [None]
  - Product contamination [None]
